FAERS Safety Report 16389506 (Version 1)
Quarter: 2019Q2

REPORT INFORMATION
  Report Type: Spontaneous
  Country: US (occurrence: US)
  Receive Date: 20190604
  Receipt Date: 20190604
  Transmission Date: 20190711
  Serious: No
  Sender: FDA-Public Use
  Company Number: US-GALDERMA-US18038212

PATIENT
  Age: 55 Year
  Sex: Female

DRUGS (25)
  1. PROACTIV GREEN TEA MOISTURIZER [Concomitant]
     Active Substance: COSMETICS
     Indication: ACNE
     Dosage: 0.1%
     Route: 061
     Dates: start: 20180803, end: 20180903
  2. VITOZA [Concomitant]
  3. BAYER LOW DOSE [Concomitant]
     Active Substance: ASPIRIN
  4. PROACTIV MD DAILY OIL CONTROL SPF 30 [Suspect]
     Active Substance: AVOBENZONE\OCTISALATE\OCTOCRYLENE
     Indication: ACNE
     Route: 061
     Dates: start: 20180803, end: 20180903
  5. PROACTIV DEEP CLEANSING WASH [Concomitant]
     Active Substance: SALICYLIC ACID
     Indication: ACNE
     Route: 061
     Dates: start: 20180803, end: 20180903
  6. HUMLOG [Concomitant]
  7. ATORVASTATIN [Concomitant]
     Active Substance: ATORVASTATIN
  8. POTA CHLORIDEER [Concomitant]
  9. BENADRYL [Concomitant]
     Active Substance: DIPHENHYDRAMINE HYDROCHLORIDE
  10. MAGNESIUM [Concomitant]
     Active Substance: MAGNESIUM
  11. PENCILLIN [Concomitant]
     Active Substance: PENICILLIN
  12. TERBINAFINE. [Concomitant]
     Active Substance: TERBINAFINE
  13. METOPROLOLER [Concomitant]
  14. LEVOTHYROXINE. [Concomitant]
     Active Substance: LEVOTHYROXINE
  15. BACATRACINE [Concomitant]
  16. PROACTIV SOLUTION BLACKHEAD DISSOLVING [Concomitant]
     Active Substance: SALICYLIC ACID
     Indication: ACNE
     Route: 061
     Dates: start: 20180803, end: 20180903
  17. PROACTIV MD DEEP CLEANSING FACE WASH [Concomitant]
     Active Substance: COSMETICS
     Indication: ACNE
     Dosage: 0.1%
     Route: 061
     Dates: start: 20180803, end: 20180903
  18. PROACTIV CLEANSING BODY BAR [Concomitant]
     Active Substance: SALICYLIC ACID
     Indication: ACNE
     Dosage: 0.1%
     Route: 061
     Dates: start: 20180803, end: 20180903
  19. LOSARTAN. [Concomitant]
     Active Substance: LOSARTAN
  20. SULFA DRUGS [Concomitant]
     Active Substance: UNSPECIFIED INGREDIENT
  21. LANTUS [Concomitant]
     Active Substance: INSULIN GLARGINE
  22. MELOXICAM. [Concomitant]
     Active Substance: MELOXICAM
  23. PROACTIV MD ADAPALENE ACNE TREATMENT [Suspect]
     Active Substance: ADAPALENE
     Indication: ACNE
     Dosage: 0.1%
     Route: 061
     Dates: start: 20180803, end: 20180903
  24. GABAPENTIN. [Concomitant]
     Active Substance: GABAPENTIN
  25. BUMETANIDE. [Concomitant]
     Active Substance: BUMETANIDE

REACTIONS (2)
  - Skin burning sensation [Recovered/Resolved]
  - Erythema [Recovered/Resolved]

NARRATIVE: CASE EVENT DATE: 20180803
